FAERS Safety Report 6692589-7 (Version None)
Quarter: 2010Q2

REPORT INFORMATION
  Report Type: 
  Country: None (occurrence: None)
  Receive Date: 20100422
  Receipt Date: 20100413
  Transmission Date: 20101027
  Serious: Yes (Hospitalization, Other)
  Sender: FDA-Public Use
  Company Number: RU-PFIZER INC-2010046687

PATIENT
  Age: 39 Year
  Sex: Male

DRUGS (3)
  1. CHAMPIX [Suspect]
     Indication: SMOKING CESSATION THERAPY
     Dosage: UNK
     Dates: start: 20090101, end: 20090101
  2. CHAMPIX [Suspect]
     Dosage: 1 MG, 2X/DAY
     Route: 048
     Dates: start: 20090601, end: 20090701
  3. BYETTA [Concomitant]
     Indication: DIABETES MELLITUS
     Dosage: UNK
     Dates: end: 20090101

REACTIONS (6)
  - ABDOMINAL PAIN UPPER [None]
  - APPENDICITIS [None]
  - ASTHENIA [None]
  - HEPATOTOXICITY [None]
  - NAUSEA [None]
  - WEIGHT INCREASED [None]
